FAERS Safety Report 6466249-1 (Version None)
Quarter: 2009Q4

REPORT INFORMATION
  Report Type: 
  Country: None (occurrence: None)
  Receive Date: 20091202
  Receipt Date: 20091120
  Transmission Date: 20100525
  Serious: Yes (Hospitalization, Other)
  Sender: FDA-Public Use
  Company Number: PHHY2009GB42155

PATIENT
  Sex: Male

DRUGS (13)
  1. CLOZARIL [Suspect]
     Indication: SCHIZOPHRENIA
     Dosage: 550 MG (250 MG MANE, 300 MG NOCTE)
     Route: 048
     Dates: start: 20060125
  2. CLOZARIL [Suspect]
     Dosage: 550 MG (250 MG MANE, 300 MG NOCTE)
     Route: 048
     Dates: start: 20090930
  3. ALCOHOL [Concomitant]
  4. DRUG THERAPY NOS [Concomitant]
  5. FLUOXETINE [Concomitant]
     Dosage: 80 MG, UNK
  6. ACAMPROSATE [Concomitant]
     Dosage: 666 MG, UNK
     Route: 048
  7. HYOSCINE HBR HYT [Concomitant]
     Dosage: 300 UG, UNK
  8. ASPIRIN [Concomitant]
     Dosage: 75 MG, UNK
  9. BENDROFLUMETHIAZIDE [Concomitant]
     Dosage: 2.5 MG, UNK
  10. LEVOTHYROXINE [Concomitant]
     Dosage: 50 MG, UNK
  11. RAMIPRIL [Concomitant]
     Dosage: 5 MG, UNK
  12. BISOPROLOL [Concomitant]
     Dosage: 10 MG, UNK
  13. EZETIMIBE [Concomitant]
     Dosage: 10 MG, QD

REACTIONS (1)
  - MULTIPLE DRUG OVERDOSE INTENTIONAL [None]
